FAERS Safety Report 22134023 (Version 1)
Quarter: 2023Q1

REPORT INFORMATION
  Report Type: Report from Study
  Country: CO (occurrence: None)
  Receive Date: 20230324
  Receipt Date: 20230324
  Transmission Date: 20230417
  Serious: Yes (Death)
  Sender: FDA-Public Use
  Company Number: 2023A069925

PATIENT
  Age: 26645 Day
  Sex: Female
  Weight: 74 kg

DRUGS (1)
  1. FASLODEX [Suspect]
     Active Substance: FULVESTRANT
     Indication: Breast cancer female
     Route: 030
     Dates: start: 20220918

REACTIONS (1)
  - Death [Fatal]

NARRATIVE: CASE EVENT DATE: 20230115
